FAERS Safety Report 8925971 (Version 2)
Quarter: 2012Q4

REPORT INFORMATION
  Report Type: 
  Country: IT (occurrence: IT)
  Receive Date: 20121126
  Receipt Date: 20121210
  Transmission Date: 20130627
  Serious: Yes (Hospitalization)
  Sender: FDA-Public Use
  Company Number: PHHY2012IT106310

PATIENT
  Age: 75 Year
  Sex: Female

DRUGS (9)
  1. GLIVEC [Suspect]
     Indication: CHRONIC MYELOID LEUKAEMIA
     Dosage: 200 mg, daily
     Dates: start: 201009
  2. GLIVEC [Suspect]
     Dosage: 400 mg, daily
     Route: 048
     Dates: start: 20110823, end: 20111228
  3. GLIVEC [Suspect]
     Dosage: UNK UKN, UNK
  4. LANSOPRAZOLE [Concomitant]
     Dosage: 30 mg, UNK
     Route: 048
  5. ALLOPURINOL [Concomitant]
     Dosage: 150 mg, UNK
     Route: 048
  6. LASIX [Concomitant]
     Dosage: 50 mg, UNK
     Route: 048
  7. ZEFFIX [Concomitant]
     Dosage: 100 mg, UNK
     Route: 048
  8. LUVION [Concomitant]
     Dosage: 100 mg, UNK
     Route: 048
  9. RYTMOBETA [Concomitant]
     Dosage: 80 mg, UNK
     Route: 048

REACTIONS (3)
  - Hepatic cirrhosis [Recovering/Resolving]
  - Jaundice hepatocellular [Recovering/Resolving]
  - Fluid retention [Recovering/Resolving]
